FAERS Safety Report 12567195 (Version 2)
Quarter: 2016Q3

REPORT INFORMATION
  Report Type: Report from Study
  Country: RO (occurrence: RO)
  Receive Date: 20160718
  Receipt Date: 20160719
  Transmission Date: 20161109
  Serious: Yes (Hospitalization)
  Sender: FDA-Public Use
  Company Number: RO-ABBVIE-16P-135-1674789-00

PATIENT
  Age: 78 Year
  Sex: Female

DRUGS (6)
  1. MODERIBA [Suspect]
     Active Substance: RIBAVIRIN
     Indication: HEPATIC CIRRHOSIS
  2. EXVIERA [Suspect]
     Active Substance: DASABUVIR
     Indication: HEPATITIS C
     Dosage: 1-0-1
     Route: 048
     Dates: start: 20160615, end: 20160711
  3. EXVIERA [Suspect]
     Active Substance: DASABUVIR
     Indication: HEPATIC CIRRHOSIS
  4. MODERIBA [Suspect]
     Active Substance: RIBAVIRIN
     Indication: HEPATITIS C
     Dosage: 3-0-2
     Route: 048
     Dates: start: 20160615, end: 20160711
  5. VIEKIRAX [Suspect]
     Active Substance: OMBITASVIR\PARITAPREVIR\RITONAVIR
     Indication: HEPATITIS C
     Dosage: 2-0-0
     Route: 048
     Dates: start: 20160615, end: 20160711
  6. VIEKIRAX [Suspect]
     Active Substance: OMBITASVIR\PARITAPREVIR\RITONAVIR
     Indication: HEPATIC CIRRHOSIS

REACTIONS (19)
  - Asthenia [Recovered/Resolved]
  - Bradycardia [Recovered/Resolved]
  - Malaise [Unknown]
  - Blood potassium decreased [Unknown]
  - Hyponatraemia [Unknown]
  - Fatigue [Not Recovered/Not Resolved]
  - Dizziness [Recovered/Resolved]
  - Anaemia [Unknown]
  - Hyperbilirubinaemia [Unknown]
  - Abdominal pain [Recovering/Resolving]
  - Vomiting [Recovering/Resolving]
  - Blood urea increased [Unknown]
  - Blood sodium decreased [Unknown]
  - Atrioventricular block [Recovered/Resolved]
  - Dyspnoea [Unknown]
  - Renal failure [Unknown]
  - Abdominal pain upper [Recovering/Resolving]
  - Tremor [Unknown]
  - Rash papular [Recovered/Resolved]

NARRATIVE: CASE EVENT DATE: 20160615
